FAERS Safety Report 6391322-6 (Version None)
Quarter: 2009Q4

REPORT INFORMATION
  Report Type: 
  Country: None (occurrence: None)
  Receive Date: 20091007
  Receipt Date: 20091002
  Transmission Date: 20100525
  Serious: Yes (Hospitalization)
  Sender: FDA-Public Use
  Company Number: PHHY2009JP37256

PATIENT
  Age: 83 Year
  Sex: Male

DRUGS (4)
  1. TEGRETOL [Suspect]
     Indication: CONVULSION
     Route: 048
  2. TEGRETOL [Suspect]
     Route: 048
  3. ADALAT [Concomitant]
     Dosage: 10 MG
     Route: 048
  4. FRANDOL [Concomitant]
     Dosage: UNK
     Route: 062

REACTIONS (4)
  - BLOOD FOLATE DECREASED [None]
  - CONVULSION [None]
  - PANCYTOPENIA [None]
  - VITAMIN B12 DECREASED [None]
